FAERS Safety Report 17404834 (Version 5)
Quarter: 2022Q4

REPORT INFORMATION
  Report Type: Spontaneous
  Country: JP (occurrence: JP)
  Receive Date: 20200211
  Receipt Date: 20221110
  Transmission Date: 20230113
  Serious: Yes (Hospitalization, Other)
  Sender: FDA-Public Use
  Company Number: JP-NBI-S202000039

PATIENT
  Age: 27 Year
  Sex: Male
  Weight: 63.1 kg

DRUGS (3)
  1. JARDIANCE [Suspect]
     Active Substance: EMPAGLIFLOZIN
     Indication: Type 1 diabetes mellitus
     Route: 065
  2. METHIMAZOLE [Concomitant]
     Active Substance: METHIMAZOLE
     Indication: Basedow^s disease
     Route: 065
  3. METHIMAZOLE [Concomitant]
     Active Substance: METHIMAZOLE
     Route: 065

REACTIONS (3)
  - Euglycaemic diabetic ketoacidosis [Recovering/Resolving]
  - Hyperthyroidism [Unknown]
  - Product use in unapproved indication [Unknown]
